FAERS Safety Report 20361532 (Version 2)
Quarter: 2022Q1

REPORT INFORMATION
  Report Type: Report from Study
  Country: PK (occurrence: PK)
  Receive Date: 20220121
  Receipt Date: 20220206
  Transmission Date: 20220423
  Serious: Yes (Other)
  Sender: FDA-Public Use
  Company Number: PK-NOVARTISPH-NVSC2021PK291442

PATIENT
  Age: 43 Year
  Sex: Male
  Weight: 77 kg

DRUGS (3)
  1. GLIVEC [Suspect]
     Active Substance: IMATINIB MESYLATE
     Indication: Philadelphia positive chronic myeloid leukaemia
     Dosage: 100 MG, QID (4X OD)
     Route: 048
     Dates: start: 20191204, end: 20211214
  2. GLIVEC [Suspect]
     Active Substance: IMATINIB MESYLATE
     Dosage: 300 MG,  (3X OD)
     Route: 065
  3. TASIGNA [Suspect]
     Active Substance: NILOTINIB
     Indication: Philadelphia positive chronic myeloid leukaemia
     Dosage: 800 MG (2+0+2)
     Route: 048
     Dates: start: 20211214, end: 20220112

REACTIONS (6)
  - Leukopenia [Not Recovered/Not Resolved]
  - Blast crisis in myelogenous leukaemia [Not Recovered/Not Resolved]
  - Blast cell count increased [Unknown]
  - Platelet count decreased [Unknown]
  - Drug intolerance [Unknown]
  - Drug resistance [Unknown]

NARRATIVE: CASE EVENT DATE: 20211214
